FAERS Safety Report 5614081-0 (Version None)
Quarter: 2008Q1

REPORT INFORMATION
  Report Type: 
  Country: None (occurrence: None)
  Receive Date: 20080205
  Receipt Date: 20080201
  Transmission Date: 20080703
  Serious: Yes (Life-Threatening, Other)
  Sender: FDA-Public Use
  Company Number: JP-ASTRAZENECA-2007AP05824

PATIENT
  Age: 12089 Day
  Sex: Male

DRUGS (3)
  1. CRESTOR [Suspect]
     Indication: HYPERCHOLESTEROLAEMIA
     Route: 048
     Dates: start: 20070829, end: 20070830
  2. DESMOPRESSIN [Concomitant]
     Indication: DIABETES INSIPIDUS
     Route: 045
     Dates: start: 19890101
  3. RADIOTHERAPY [Concomitant]
     Indication: BRAIN NEOPLASM
     Dates: start: 19890101

REACTIONS (2)
  - DRUG EFFECT DECREASED [None]
  - WATER INTOXICATION [None]
